FAERS Safety Report 15221891 (Version 1)
Quarter: 2018Q3

REPORT INFORMATION
  Report Type: Spontaneous
  Country: CN (occurrence: CN)
  Receive Date: 20180731
  Receipt Date: 20180731
  Transmission Date: 20181010
  Serious: Yes (Hospitalization, Other)
  Sender: FDA-Public Use
  Company Number: CN-PFIZER INC-2018301988

PATIENT
  Age: 46 Year
  Sex: Male

DRUGS (3)
  1. METHYLPREDNISOLONE SODIUM SUCCINATE. [Suspect]
     Active Substance: METHYLPREDNISOLONE SODIUM SUCCINATE
     Dosage: 1 G, DAILY
     Route: 042
     Dates: start: 2016
  2. ACYCLOVIR /00587301/ [Concomitant]
     Active Substance: ACYCLOVIR
     Indication: ENCEPHALITIS VIRAL
     Dosage: 0.5 G, EVERY 8 HOURS
     Route: 042
     Dates: start: 2016
  3. GAMMA GLOBULIN [Concomitant]
     Active Substance: IMMUNE GLOBULIN NOS
     Indication: ENCEPHALITIS AUTOIMMUNE
     Dosage: 30 MG, DAILY (FOR 5 DAYS)
     Route: 042
     Dates: start: 2016

REACTIONS (4)
  - Dural arteriovenous fistula [Recovering/Resolving]
  - Cerebral venous thrombosis [Recovering/Resolving]
  - Haemorrhage intracranial [Recovering/Resolving]
  - Hypercoagulation [Recovering/Resolving]

NARRATIVE: CASE EVENT DATE: 2016
